FAERS Safety Report 5606076-8 (Version None)
Quarter: 2008Q1

REPORT INFORMATION
  Report Type: 
  Country: None (occurrence: None)
  Receive Date: 20080129
  Receipt Date: 20080116
  Transmission Date: 20080703
  Serious: Yes (Other)
  Sender: FDA-Public Use
  Company Number: US-SANOFI-SYNTHELABO-A03200705242

PATIENT
  Sex: Male
  Weight: 70.3 kg

DRUGS (5)
  1. AMBIEN [Suspect]
     Indication: INSOMNIA
     Route: 048
     Dates: start: 20010620, end: 20021231
  2. AMBIEN [Interacting]
     Indication: PAIN
     Route: 048
     Dates: start: 20010620, end: 20021231
  3. MS CONTIN [Concomitant]
     Indication: PAIN
     Route: 048
     Dates: end: 20021230
  4. SOMA [Interacting]
     Indication: PAIN
     Dosage: 350 1 TAB THREE TIMES/DAY
     Route: 065
     Dates: end: 20021231
  5. NORCO [Interacting]
     Indication: PAIN
     Dosage: 10/325 1 TAB THREE TIMES/DAY
     Route: 065
     Dates: end: 20021231

REACTIONS (3)
  - AMNESIA [None]
  - IMPAIRED DRIVING ABILITY [None]
  - SOMNAMBULISM [None]
